FAERS Safety Report 16782222 (Version 1)
Quarter: 2019Q3

REPORT INFORMATION
  Report Type: Spontaneous
  Country: DE (occurrence: DE)
  Receive Date: 20190906
  Receipt Date: 20190906
  Transmission Date: 20191005
  Serious: Yes (Other)
  Sender: FDA-Public Use
  Company Number: DE-MYLANLABS-2019M1083281

PATIENT
  Age: 84 Year
  Sex: Female
  Weight: 59 kg

DRUGS (23)
  1. BISOPROLOL [Suspect]
     Active Substance: BISOPROLOL
     Indication: PRODUCT USED FOR UNKNOWN INDICATION
     Dosage: UNK
     Dates: start: 201203, end: 2018
  2. IBUFLAM                            /00109201/ [Suspect]
     Active Substance: IBUPROFEN
     Indication: PRODUCT USED FOR UNKNOWN INDICATION
     Dosage: UNK
     Dates: start: 201211, end: 2012
  3. RAMIPRIL. [Suspect]
     Active Substance: RAMIPRIL
     Indication: PRODUCT USED FOR UNKNOWN INDICATION
     Dosage: UNK, UNK NON AZ PRODUCT
     Dates: start: 201606, end: 2016
  4. VALSARTAN. [Suspect]
     Active Substance: VALSARTAN
     Dosage: UNK
     Dates: start: 201202, end: 2014
  5. BISOPROLOL [Suspect]
     Active Substance: BISOPROLOL
     Dosage: UNK
     Dates: start: 201206, end: 2013
  6. NOVAMINSULFON LICHTENSTEIN [Suspect]
     Active Substance: METAMIZOLE SODIUM
     Indication: PRODUCT USED FOR UNKNOWN INDICATION
     Dosage: UNK UNK, UNK
     Dates: start: 201610, end: 2016
  7. NITROLINGUAL [Suspect]
     Active Substance: NITROGLYCERIN
     Dosage: UNK
     Dates: start: 201503, end: 2015
  8. NIFEDIPINE. [Suspect]
     Active Substance: NIFEDIPINE
     Indication: PRODUCT USED FOR UNKNOWN INDICATION
     Dosage: UNK NON AZ PRODUCT
     Dates: start: 201609, end: 2016
  9. CLINDAMYCIN. [Suspect]
     Active Substance: CLINDAMYCIN
     Indication: PRODUCT USED FOR UNKNOWN INDICATION
     Dosage: UNK UNK, UNK
     Dates: start: 201704, end: 2017
  10. MIRTAZAPINE. [Suspect]
     Active Substance: MIRTAZAPINE
     Indication: PRODUCT USED FOR UNKNOWN INDICATION
     Dosage: UNK UNK, UNK
     Dates: start: 201210, end: 2013
  11. VALSARTAN. [Suspect]
     Active Substance: VALSARTAN
     Indication: HYPERTENSION
     Dosage: UNK
     Dates: start: 201810
  12. NIFEDIPINE. [Suspect]
     Active Substance: NIFEDIPINE
     Dosage: UNK NON AZ PRODUCT
     Dates: start: 201203, end: 2012
  13. VALSARTAN. [Suspect]
     Active Substance: VALSARTAN
     Dosage: UNK
     Dates: start: 201807, end: 2018
  14. VALSARTAN. [Suspect]
     Active Substance: VALSARTAN
     Dosage: UNK
     Dates: start: 201610, end: 2018
  15. BISOPROLOL [Suspect]
     Active Substance: BISOPROLOL
     Dosage: UNK
     Dates: start: 201203
  16. AMLODIPINE [Suspect]
     Active Substance: AMLODIPINE BESYLATE
     Indication: PRODUCT USED FOR UNKNOWN INDICATION
     Dosage: UNK NON AZ PRODUCT
     Dates: start: 201203, end: 2012
  17. VALSARTAN. [Suspect]
     Active Substance: VALSARTAN
     Dosage: UNK UNK, UNK
     Dates: start: 201209, end: 2016
  18. METOPROLOL. [Suspect]
     Active Substance: METOPROLOL
     Indication: PRODUCT USED FOR UNKNOWN INDICATION
     Dosage: UNK UNK, UNK
     Route: 048
     Dates: start: 201504, end: 2015
  19. NITROLINGUAL [Suspect]
     Active Substance: NITROGLYCERIN
     Indication: PRODUCT USED FOR UNKNOWN INDICATION
     Dosage: UNK UNK, UNK
     Dates: start: 201203, end: 2017
  20. LENDORMIN [Suspect]
     Active Substance: BROTIZOLAM
     Indication: PRODUCT USED FOR UNKNOWN INDICATION
     Dosage: UNK UNK, UNK
     Dates: start: 201211, end: 2017
  21. VALSARTAN. [Suspect]
     Active Substance: VALSARTAN
     Dosage: UNK
     Dates: start: 201808
  22. IBUFLAM                            /00109201/ [Suspect]
     Active Substance: IBUPROFEN
     Dosage: UNK UNK, UNK
     Dates: start: 201704, end: 2017
  23. NIFEDIPINE. [Suspect]
     Active Substance: NIFEDIPINE
     Dosage: UNK NON AZ PRODUCT
     Dates: start: 201604, end: 2016

REACTIONS (4)
  - Carotid artery disease [Unknown]
  - Hypertension [Unknown]
  - Normochromic anaemia [Unknown]
  - Chronic kidney disease [Unknown]

NARRATIVE: CASE EVENT DATE: 2018
